FAERS Safety Report 4441925-0 (Version None)
Quarter: 2004Q3

REPORT INFORMATION
  Report Type: 
  Country: None (occurrence: None)
  Receive Date: 20040903
  Receipt Date: 20040820
  Transmission Date: 20050211
  Serious: Yes (Other)
  Sender: FDA-Public Use
  Company Number: 2004UW03678

PATIENT
  Age: 81 Year
  Sex: Female
  Weight: 73.0291 kg

DRUGS (2)
  1. CRESTOR [Suspect]
     Indication: BLOOD CHOLESTEROL INCREASED
     Dosage: 10 MG PO
     Route: 048
     Dates: start: 20040227
  2. PRILOSEC [Concomitant]

REACTIONS (5)
  - ABDOMINAL PAIN [None]
  - FEELING ABNORMAL [None]
  - LOSS OF CONTROL OF LEGS [None]
  - MUSCLE CRAMP [None]
  - MUSCULAR WEAKNESS [None]
